FAERS Safety Report 6831908-5 (Version None)
Quarter: 2010Q3

REPORT INFORMATION
  Report Type: 
  Country: None (occurrence: None)
  Receive Date: 20100712
  Receipt Date: 20100701
  Transmission Date: 20110219
  Serious: Yes (Other)
  Sender: FDA-Public Use
  Company Number: US-MERCK-1006USA02971

PATIENT
  Age: 103 Year
  Sex: Female

DRUGS (2)
  1. COSOPT [Suspect]
     Indication: GLAUCOMA
     Route: 047
     Dates: start: 19900101
  2. VITAMINS (UNSPECIFIED) [Concomitant]
     Route: 065

REACTIONS (8)
  - CONJUNCTIVITIS [None]
  - DRUG DOSE OMISSION [None]
  - EYE DISORDER [None]
  - HYPOTENSION [None]
  - OCULAR DISCOMFORT [None]
  - OVARIAN CANCER [None]
  - PRODUCT CONTAINER ISSUE [None]
  - PRODUCT DROPPER ISSUE [None]
